FAERS Safety Report 10174170 (Version 1)
Quarter: 2014Q2

REPORT INFORMATION
  Report Type: Spontaneous
  Country: GB (occurrence: GB)
  Receive Date: 20140515
  Receipt Date: 20140515
  Transmission Date: 20141212
  Serious: Yes (Other)
  Sender: FDA-Public Use
  Company Number: GB-PFIZER INC-2014132617

PATIENT
  Sex: Male

DRUGS (4)
  1. AMIODARONE HCL [Suspect]
     Dosage: UNK
     Route: 065
     Dates: end: 201303
  2. WARFARIN [Interacting]
     Indication: ATRIAL FIBRILLATION
     Dosage: 7 MG, UNK
     Route: 065
  3. LOSARTAN [Concomitant]
  4. OMEPRAZOLE [Concomitant]

REACTIONS (5)
  - Drug interaction [Unknown]
  - Tremor [Unknown]
  - International normalised ratio increased [Unknown]
  - Gait disturbance [Unknown]
  - Vitreous floaters [Unknown]
